FAERS Safety Report 24454061 (Version 2)
Quarter: 2024Q4

REPORT INFORMATION
  Report Type: Report from Study
  Country: FR (occurrence: FR)
  Receive Date: 20241017
  Receipt Date: 20241018
  Transmission Date: 20250114
  Serious: No
  Sender: ROCHE
  Company Number: FR-ROCHE-3459683

PATIENT
  Age: 30 Year
  Sex: Female

DRUGS (16)
  1. RITUXIMAB [Suspect]
     Active Substance: RITUXIMAB
     Indication: Sjogren^s syndrome
     Route: 042
  2. RITUXIMAB [Suspect]
     Active Substance: RITUXIMAB
     Indication: Systemic lupus erythematosus
  3. RITUXIMAB [Suspect]
     Active Substance: RITUXIMAB
     Indication: Antiphospholipid syndrome
  4. OBINUTUZUMAB [Concomitant]
     Active Substance: OBINUTUZUMAB
     Indication: Arthritis
     Dosage: AT WEEK 0 AND WEEK 2
     Route: 042
  5. MYCOPHENOLATE MOFETIL [Concomitant]
     Active Substance: MYCOPHENOLATE MOFETIL
  6. HYDROXYCHLOROQUINE [Concomitant]
     Active Substance: HYDROXYCHLOROQUINE
  7. PREDNISONE [Concomitant]
     Active Substance: PREDNISONE
  8. AZATHIOPRINE [Concomitant]
     Active Substance: AZATHIOPRINE
  9. BELIMUMAB [Concomitant]
     Active Substance: BELIMUMAB
  10. METHOTREXATE [Concomitant]
     Active Substance: METHOTREXATE
  11. ABATACEPT [Concomitant]
     Active Substance: ABATACEPT
  12. TOCILIZUMAB [Concomitant]
     Active Substance: TOCILIZUMAB
     Route: 065
  13. LEFLUNOMIDE [Concomitant]
     Active Substance: LEFLUNOMIDE
  14. SULFASALAZINE [Concomitant]
     Active Substance: SULFASALAZINE
  15. ETANERCEPT [Concomitant]
     Active Substance: ETANERCEPT
  16. USTEKINUMAB [Concomitant]
     Active Substance: USTEKINUMAB

REACTIONS (1)
  - Drug specific antibody present [Unknown]
